FAERS Safety Report 4657029-8 (Version None)
Quarter: 2005Q2

REPORT INFORMATION
  Report Type: 
  Country: None (occurrence: None)
  Receive Date: 20050506
  Receipt Date: 20050420
  Transmission Date: 20051028
  Serious: Yes (Death)
  Sender: FDA-Public Use
  Company Number: 10960

PATIENT

DRUGS (1)
  1. METHOTREXATE [Suspect]

REACTIONS (4)
  - LEUKAEMIA [None]
  - LEUKOPENIA [None]
  - NAUSEA [None]
  - SEPSIS [None]
